FAERS Safety Report 20980314 (Version 10)
Quarter: 2023Q4

REPORT INFORMATION
  Report Type: Report from Study
  Country: US (occurrence: US)
  Receive Date: 20220620
  Receipt Date: 20231117
  Transmission Date: 20240110
  Serious: Yes (Other)
  Sender: FDA-Public Use
  Company Number: US-NOVARTISTESTPH-NVSC2022US139970

PATIENT
  Age: 49 Year
  Sex: Female

DRUGS (1)
  1. KESIMPTA [Suspect]
     Active Substance: OFATUMUMAB
     Indication: Relapsing-remitting multiple sclerosis
     Dosage: 20 MG, QW
     Route: 058
     Dates: start: 20220610

REACTIONS (13)
  - Transient ischaemic attack [Recovered/Resolved]
  - Blindness unilateral [Recovered/Resolved]
  - Multiple sclerosis pseudo relapse [Recovering/Resolving]
  - Asthma [Recovering/Resolving]
  - Brain fog [Unknown]
  - Dizziness [Not Recovered/Not Resolved]
  - Headache [Not Recovered/Not Resolved]
  - Urinary tract infection [Not Recovered/Not Resolved]
  - Dysuria [Recovered/Resolved]
  - Vomiting [Unknown]
  - Diplopia [Unknown]
  - Musculoskeletal stiffness [Unknown]
  - Pain [Unknown]

NARRATIVE: CASE EVENT DATE: 20220610
